FAERS Safety Report 10996885 (Version 1)
Quarter: 2015Q2

REPORT INFORMATION
  Report Type: Spontaneous
  Country: ES (occurrence: ES)
  Receive Date: 20150408
  Receipt Date: 20150408
  Transmission Date: 20150821
  Serious: Yes (Other)
  Sender: FDA-Public Use
  Company Number: ES-009507513-1504ESP000033

PATIENT
  Age: 38 Year
  Sex: Male
  Weight: 68 kg

DRUGS (1)
  1. PROPECIA 1 MG COMPRIMIDOS RECUBIERTOS CON PEL?CULA [Suspect]
     Active Substance: FINASTERIDE
     Indication: ALOPECIA
     Dosage: 28 TABLETS
     Route: 048
     Dates: start: 20020101, end: 20050101

REACTIONS (1)
  - Primary hypogonadism [Not Recovered/Not Resolved]

NARRATIVE: CASE EVENT DATE: 20050101
